FAERS Safety Report 14232908 (Version 1)
Quarter: 2017Q4

REPORT INFORMATION
  Report Type: Spontaneous
  Country: US (occurrence: None)
  Receive Date: 20171128
  Receipt Date: 20171128
  Transmission Date: 20180321
  Serious: Yes (Hospitalization)
  Sender: FDA-Public Use
  Company Number: None

PATIENT
  Age: 74 Year
  Sex: Male
  Weight: 63.5 kg

DRUGS (2)
  1. CARBOPLATIN. [Suspect]
     Active Substance: CARBOPLATIN
     Indication: OESOPHAGEAL CARCINOMA
     Route: 042
     Dates: start: 20170425
  2. PACLITAXEL. [Suspect]
     Active Substance: PACLITAXEL
     Indication: OESOPHAGEAL CARCINOMA
     Route: 042
     Dates: start: 20170425

REACTIONS (4)
  - Sepsis [None]
  - Anaemia [None]
  - Pneumonia [None]
  - Hypotension [None]

NARRATIVE: CASE EVENT DATE: 20170429
